FAERS Safety Report 9004800 (Version 3)
Quarter: 2013Q1

REPORT INFORMATION
  Report Type: Spontaneous
  Country: JP (occurrence: None)
  Receive Date: 20121227
  Receipt Date: 20130201
  Transmission Date: 20140127
  Serious: No
  Sender: FDA-Public Use
  Company Number: SPI201200356

PATIENT
  Age: 43 Year
  Sex: Female

DRUGS (3)
  1. AMITIZA (LUBIPROSTONE) [Suspect]
     Indication: CONSTIPATION
     Route: 048
     Dates: start: 20121204, end: 20121205
  2. FEROTYM [Concomitant]
  3. DAIOKANZOTO EXTRACT FOR ETHICAL USE [Concomitant]

REACTIONS (5)
  - Feeling cold [None]
  - Arthralgia [None]
  - Dyspnoea [None]
  - Nausea [None]
  - Hypersensitivity [None]
